FAERS Safety Report 6241760-7 (Version None)
Quarter: 2009Q2

REPORT INFORMATION
  Report Type: 
  Country: None (occurrence: None)
  Receive Date: 20090623
  Receipt Date: 20090610
  Transmission Date: 20091009
  Serious: Yes (Other)
  Sender: FDA-Public Use
  Company Number: CH-ELI_LILLY_AND_COMPANY-CH200906002651

PATIENT
  Age: 62 Year
  Sex: Female
  Weight: 87 kg

DRUGS (5)
  1. CYMBALTA [Suspect]
     Indication: DEPRESSION
     Dosage: 90 MG, DAILY (1/D)
     Route: 048
     Dates: start: 20070101, end: 20090601
  2. TRIMIN /00051802/ [Concomitant]
     Indication: DEPRESSION
     Dosage: 50 MG, DAILY (1/D)
     Route: 048
     Dates: start: 20050101
  3. COAPROVEL [Concomitant]
     Indication: HYPERTENSION
     Dosage: 300/12.5, DAILY (1/D)
     Route: 048
     Dates: start: 20070101
  4. METO ZEROK [Concomitant]
     Indication: HYPERTENSION
     Dosage: 50 MG, DAILY (1/D)
     Route: 048
     Dates: start: 20060101
  5. PALLADONE [Concomitant]
     Indication: PAIN
     Dosage: 54 MG, DAILY (1/D)
     Route: 048
     Dates: start: 20080101

REACTIONS (5)
  - ASTHENIA [None]
  - FLUSHING [None]
  - GENERALISED ERYTHEMA [None]
  - HYPERHIDROSIS [None]
  - TREMOR [None]
